FAERS Safety Report 21286883 (Version 1)
Quarter: 2022Q3

REPORT INFORMATION
  Report Type: Spontaneous
  Country: AU (occurrence: AU)
  Receive Date: 20220902
  Receipt Date: 20220902
  Transmission Date: 20221027
  Serious: Yes (Hospitalization, Other)
  Sender: FDA-Public Use
  Company Number: AU-GSK-AU2022APC123830

PATIENT

DRUGS (1)
  1. ALBUTEROL [Suspect]
     Active Substance: ALBUTEROL
     Indication: Product used for unknown indication
     Dosage: UNK

REACTIONS (17)
  - Cardiac failure [Unknown]
  - Coronary artery disease [Unknown]
  - Dyspnoea [Unknown]
  - Hypoventilation [Unknown]
  - Left ventricular failure [Unknown]
  - Excessive dynamic airway collapse [Unknown]
  - Condition aggravated [Unknown]
  - Asthma [Unknown]
  - Rhinitis [Unknown]
  - Sinusitis [Unknown]
  - Anxiety [Unknown]
  - Oedema peripheral [Unknown]
  - Dyspnoea exertional [Unknown]
  - Respiratory tract infection [Unknown]
  - Emphysema [Unknown]
  - Eosinophil count increased [Unknown]
  - Hypopnoea [Unknown]

NARRATIVE: CASE EVENT DATE: 20190101
